FAERS Safety Report 20490541 (Version 1)
Quarter: 2022Q1

REPORT INFORMATION
  Report Type: Spontaneous
  Country: FR (occurrence: FR)
  Receive Date: 20220218
  Receipt Date: 20220218
  Transmission Date: 20220423
  Serious: Yes (Hospitalization)
  Sender: FDA-Public Use
  Company Number: None

PATIENT
  Age: 74 Year
  Sex: Male
  Weight: 91 kg

DRUGS (2)
  1. KEYTRUDA [Suspect]
     Active Substance: PEMBROLIZUMAB
     Indication: Metastatic malignant melanoma
     Dosage: 400 MILLIGRAM, EVERY 6 WEEKS, STRENGTH: 25 MG/ML
     Route: 041
     Dates: start: 20210422, end: 20210722
  2. KEYTRUDA [Suspect]
     Active Substance: PEMBROLIZUMAB
     Dosage: 200 MILLIGRAM, Q3W, STRENGTH: 25 MG/ML
     Route: 041
     Dates: start: 20211014, end: 20211215

REACTIONS (1)
  - Troponin T increased [Recovered/Resolved]

NARRATIVE: CASE EVENT DATE: 20210601
